FAERS Safety Report 9310266 (Version 1)
Quarter: 2013Q2

REPORT INFORMATION
  Report Type: Report from Study
  Country: CA (occurrence: CA)
  Receive Date: 20130527
  Receipt Date: 20130527
  Transmission Date: 20140414
  Serious: Yes (Other)
  Sender: FDA-Public Use
  Company Number: PHHY2013CA052585

PATIENT
  Sex: Female

DRUGS (4)
  1. ACLASTA [Suspect]
     Indication: OSTEOPOROSIS
     Dosage: UNK
     Route: 042
     Dates: start: 20090708
  2. ACLASTA [Suspect]
     Dosage: UNK
     Route: 042
     Dates: start: 20100708
  3. ACLASTA [Suspect]
     Dosage: UNK
     Route: 042
     Dates: start: 20110712
  4. ACLASTA [Suspect]
     Dosage: UNK
     Route: 042
     Dates: start: 20120712

REACTIONS (1)
  - Hepatic cancer [Unknown]
